FAERS Safety Report 18675997 (Version 1)
Quarter: 2020Q4

REPORT INFORMATION
  Report Type: Spontaneous
  Country: US (occurrence: US)
  Receive Date: 20201228
  Receipt Date: 20201228
  Transmission Date: 20210114
  Serious: No
  Sender: FDA-Public Use
  Company Number: None

PATIENT
  Sex: Male

DRUGS (1)
  1. VANCOMYCIN HYDROCHLORIDE 1000 MG HOSPIRA [Suspect]
     Active Substance: VANCOMYCIN HYDROCHLORIDE
     Indication: OSTEOMYELITIS
     Dosage: ?          OTHER ROUTE:IV?
     Route: 042
     Dates: start: 20201112, end: 20201218

REACTIONS (4)
  - Drug level increased [None]
  - Tinnitus [None]
  - Drug trough level [None]
  - Therapy cessation [None]
